FAERS Safety Report 9247664 (Version 1)
Quarter: 2013Q2

REPORT INFORMATION
  Report Type: Spontaneous
  Country: US (occurrence: US)
  Receive Date: 20130423
  Receipt Date: 20130423
  Transmission Date: 20140414
  Serious: Yes (Hospitalization)
  Sender: FDA-Public Use
  Company Number: US-VIROPHARMA INCORPORATED-20130411CINRY4112

PATIENT
  Age: 47 Year
  Sex: Female

DRUGS (1)
  1. CINRYZE (C1 ESTERASE INHIBITOR (HUMAN)) [Suspect]
     Indication: HEREDITARY ANGIOEDEMA
     Dates: start: 20100608

REACTIONS (2)
  - Nephrolithiasis [Recovered/Resolved]
  - Hereditary angioedema [Recovered/Resolved]
